FAERS Safety Report 5001455-4 (Version None)
Quarter: 2006Q2

REPORT INFORMATION
  Report Type: 
  Country: None (occurrence: None)
  Receive Date: 20060512
  Receipt Date: 20050415
  Transmission Date: 20061013
  Serious: Yes (Death, Hospitalization)
  Sender: FDA-Public Use
  Company Number: US-MERCK-0504USA03268

PATIENT
  Age: 69 Year
  Sex: Female
  Weight: 68 kg

DRUGS (1)
  1. VIOXX [Suspect]
     Indication: ARTHRITIS
     Route: 048
     Dates: start: 20011004, end: 20040424

REACTIONS (8)
  - ANGIOPATHY [None]
  - CARDIAC HYPERTROPHY [None]
  - CARDIO-RESPIRATORY ARREST [None]
  - CHRONIC SINUSITIS [None]
  - HEMIPARESIS [None]
  - MYOCARDIAL INFARCTION [None]
  - PARAESTHESIA [None]
  - SALIVARY GLAND CYST [None]
